FAERS Safety Report 5316231-2 (Version None)
Quarter: 2007Q2

REPORT INFORMATION
  Report Type: 
  Country: None (occurrence: None)
  Receive Date: 20070503
  Receipt Date: 20070425
  Transmission Date: 20071010
  Serious: Yes (Hospitalization)
  Sender: FDA-Public Use
  Company Number: DE-BOEHRINGER INGELHEIM PHARMACEUTICALS, INC.-2007-DE-02429DE

PATIENT
  Sex: Male

DRUGS (10)
  1. AGGRENOX [Suspect]
  2. PLAVIX [Concomitant]
  3. PANTOZOL [Concomitant]
  4. TORSEMIDE [Concomitant]
  5. CAPTOHEXAL [Concomitant]
  6. DIGIMERCK [Concomitant]
  7. ALLOPURINOL [Concomitant]
  8. FERROUS SULFATE TAB [Concomitant]
  9. LACTULOSE [Concomitant]
     Dosage: AS REQUIRED
  10. NOVALGIN [Concomitant]
     Dosage: AS REQUIRED

REACTIONS (4)
  - HAEMATOMA [None]
  - HAEMORRHAGIC DIATHESIS [None]
  - OESOPHAGITIS ULCERATIVE [None]
  - UPPER GASTROINTESTINAL HAEMORRHAGE [None]
